FAERS Safety Report 8965838 (Version 1)
Quarter: 2012Q4

REPORT INFORMATION
  Report Type: 
  Country: US (occurrence: US)
  Receive Date: 20121217
  Receipt Date: 20121217
  Transmission Date: 20130627
  Serious: Yes (Other)
  Sender: FDA-Public Use
  Company Number: US-PFIZER INC-2012315834

PATIENT
  Age: 29 Year
  Sex: Male
  Weight: 83.9 kg

DRUGS (5)
  1. ADVIL [Suspect]
     Indication: FACIAL PAIN
     Dosage: UNK
     Route: 048
     Dates: start: 20121210
  2. ADVIL [Suspect]
     Indication: SWELLING FACE
  3. LISDEXAMFETAMINE DIMESYLATE [Concomitant]
     Indication: ATTENTION DEFICIT-HYPERACTIVITY DISORDER
     Dosage: 40 mg, 2x/day
  4. IBUPROFEN [Concomitant]
     Indication: FACIAL PAIN
     Dosage: 600 mg, 4x/day
     Dates: start: 20121209, end: 20121210
  5. IBUPROFEN [Concomitant]
     Indication: SWELLING FACE

REACTIONS (2)
  - Overdose [Unknown]
  - Haematemesis [Unknown]
